FAERS Safety Report 13230524 (Version 1)
Quarter: 2017Q1

REPORT INFORMATION
  Report Type: Spontaneous
  Country: NL (occurrence: NL)
  Receive Date: 20170214
  Receipt Date: 20170214
  Transmission Date: 20170428
  Serious: Yes (Hospitalization, Other)
  Sender: FDA-Public Use
  Company Number: NL-PFIZER INC-2017062336

PATIENT
  Age: 62 Year
  Sex: Male

DRUGS (25)
  1. METOJECT [Interacting]
     Active Substance: METHOTREXATE SODIUM
     Indication: RHEUMATOID ARTHRITIS
     Dosage: 1 DF, 1X/ WEEK
     Route: 058
     Dates: start: 2015, end: 20170108
  2. DIPYRIDAMOL [Concomitant]
     Dosage: 200 MG, 2X/DAY
     Route: 048
  3. HYDROXYCHLOROQUINE SULFATE. [Concomitant]
     Active Substance: HYDROXYCHLOROQUINE SULFATE
     Dosage: 200 MG, 2X/DAY
     Route: 048
  4. MACROGOL W/MACROGOL 3350/POTASSIUM /07928201/ [Concomitant]
     Dosage: 1 DF, 2X/DAY AS NEEDED
     Route: 048
  5. DICLOFENAC SODIUM. [Concomitant]
     Active Substance: DICLOFENAC SODIUM
     Dosage: 50 MG, 3X/DAY
     Route: 048
  6. FOLIUMZUUR [Concomitant]
     Active Substance: FOLIC ACID
     Dosage: 5 MG, 2X/WEEK
     Route: 048
  7. COLECALCIFEROL [Concomitant]
     Active Substance: CHOLECALCIFEROL
     Dosage: 800 IU, 1X/DAY
     Route: 048
  8. PARACETAMOL [Concomitant]
     Active Substance: ACETAMINOPHEN
     Dosage: 1000 MG, 4X/DAY
     Route: 048
  9. THIAMINE HYDROCHLORIDE. [Concomitant]
     Active Substance: THIAMINE HYDROCHLORIDE
     Dosage: 50 MG, 2X/DAY
     Route: 048
  10. FLUTICASONPROPIONAAT [Concomitant]
     Dosage: 50 UG, 2X/DAY
     Route: 045
  11. METOPROLOLSUCCINAAT SANDOZ [Concomitant]
     Dosage: 25 MG, 1X/DAY
     Route: 048
  12. FRAXIPARINE [Concomitant]
     Active Substance: NADROPARIN CALCIUM
     Dosage: 0.3 ML, 1X/DAY
     Route: 058
  13. ACETYLCYSTEINE. [Concomitant]
     Active Substance: ACETYLCYSTEINE
     Dosage: 600 MG, 1X/DAY
     Route: 048
  14. PREDNISOLON [Concomitant]
     Active Substance: PREDNISOLONE
     Dosage: 7.5 MG, 1X/DAY
     Route: 048
  15. VITAMINE B COMPLEX [Concomitant]
     Dosage: 1 DF, 1X/DAY
     Route: 048
  16. TEMAZEPAM. [Concomitant]
     Active Substance: TEMAZEPAM
     Dosage: 10 MG, AS NEEDED PER NIGHT
     Route: 048
  17. RISEDRONAATNATRIUM [Concomitant]
     Dosage: 35 MG, 1X PER WEEK
     Route: 048
  18. OXAZEPAM. [Concomitant]
     Active Substance: OXAZEPAM
     Dosage: 10 MG, 3X/DAY AS NEEDED
     Route: 048
  19. ATORVASTATINE ACTAVIS [Concomitant]
     Dosage: 10 MG, 1X/DAY
     Route: 048
  20. LYRICA [Suspect]
     Active Substance: PREGABALIN
     Indication: NEURALGIA
     Dosage: 75 MG, 2X/DAY
     Route: 048
     Dates: start: 201612, end: 20170107
  21. ASPIRIN. [Concomitant]
     Active Substance: ASPIRIN
     Dosage: 80 MG, 1X/DAY
     Route: 048
  22. OXYNORM [Concomitant]
     Active Substance: OXYCODONE HYDROCHLORIDE
     Dosage: 5 MG, AS NEEDED EVERY 4 HOURS
     Route: 048
  23. ASCORBINEZUUR [Concomitant]
     Dosage: 500 MG, 1X/DAY
     Route: 048
  24. HALOPERIDOL. [Concomitant]
     Active Substance: HALOPERIDOL
     Dosage: 1 MG, 3X/DAY AS NEEDED
     Route: 048
  25. OXYCONTIN [Concomitant]
     Active Substance: OXYCODONE HYDROCHLORIDE
     Dosage: 20 MG, 2X/DAY
     Route: 048

REACTIONS (7)
  - Diarrhoea [Unknown]
  - Pyrexia [Unknown]
  - Cough [Unknown]
  - Ischaemic stroke [Unknown]
  - Drug interaction [Unknown]
  - Neutropenia [Recovering/Resolving]
  - Sepsis [Unknown]

NARRATIVE: CASE EVENT DATE: 20170103
